FAERS Safety Report 6395372-5 (Version None)
Quarter: 2009Q4

REPORT INFORMATION
  Report Type: 
  Country: None (occurrence: None)
  Receive Date: 20091009
  Receipt Date: 20090930
  Transmission Date: 20100525
  Serious: Yes (Hospitalization)
  Sender: FDA-Public Use
  Company Number: BR-ELI_LILLY_AND_COMPANY-BR200909000789

PATIENT
  Sex: Female

DRUGS (3)
  1. HUMULIN R [Suspect]
     Indication: TYPE 2 DIABETES MELLITUS
     Dosage: 15 IU, DAILY (1/D)
     Route: 058
     Dates: start: 20080101
  2. HUMULIN R [Suspect]
     Dosage: 20 IU, DAILY (1/D)
     Route: 058
  3. GLIBENCLAMIDE [Concomitant]
     Indication: TYPE 2 DIABETES MELLITUS
     Dosage: 5 MG, 2/D
     Route: 048
     Dates: start: 20050101

REACTIONS (2)
  - BLOOD GLUCOSE FLUCTUATION [None]
  - INFARCTION [None]
